FAERS Safety Report 7810979-3 (Version None)
Quarter: 2011Q4

REPORT INFORMATION
  Report Type: 
  Country: None (occurrence: None)
  Receive Date: 20111013
  Receipt Date: 20111004
  Transmission Date: 20120403
  Serious: Yes (Other)
  Sender: FDA-Public Use
  Company Number: IT-JNJFOC-20111002474

PATIENT
  Age: 70 Year
  Sex: Female

DRUGS (5)
  1. SIMPONI [Suspect]
     Indication: RHEUMATOID ARTHRITIS
     Route: 058
     Dates: start: 20110606
  2. STRONTIUM RANELATE [Concomitant]
  3. ATORVASTATIN [Concomitant]
  4. IBUPROFEN [Concomitant]
     Route: 048
  5. ACETYLSALICYLIC ACID [Concomitant]

REACTIONS (1)
  - ECCHYMOSIS [None]
